FAERS Safety Report 15496050 (Version 1)
Quarter: 2018Q4

REPORT INFORMATION
  Report Type: Spontaneous
  Country: RS (occurrence: RS)
  Receive Date: 20181012
  Receipt Date: 20181012
  Transmission Date: 20190205
  Serious: Yes (Other)
  Sender: FDA-Public Use
  Company Number: PHHY2018RS123248

PATIENT
  Sex: Male

DRUGS (1)
  1. MOMETASONE SANDOZ [Suspect]
     Active Substance: MOMETASONE
     Indication: RHINITIS ALLERGIC
     Dosage: 1 DF, UNK (1X1 INH)
     Route: 045

REACTIONS (12)
  - Arrhythmia [Recovered/Resolved]
  - C-reactive protein increased [Recovered/Resolved]
  - Cough [Recovered/Resolved]
  - Nasal congestion [Recovered/Resolved]
  - Sputum discoloured [Recovered/Resolved]
  - Body temperature increased [Recovered/Resolved]
  - Tremor [Recovered/Resolved]
  - Heart sounds abnormal [Recovered/Resolved]
  - Pneumonia [Recovered/Resolved]
  - Chills [Recovered/Resolved]
  - Blood fibrinogen increased [Recovered/Resolved]
  - Headache [Recovered/Resolved]
